FAERS Safety Report 21396179 (Version 1)
Quarter: 2022Q3

REPORT INFORMATION
  Report Type: Spontaneous
  Country: US (occurrence: None)
  Receive Date: 20220930
  Receipt Date: 20220930
  Transmission Date: 20221027
  Serious: Yes (Other)
  Sender: FDA-Public Use
  Company Number: US-MICRO LABS LIMITED-ML2022-04834

PATIENT
  Age: 63 Year
  Sex: Male

DRUGS (7)
  1. DIPHENHYDRAMINE HYDROCHLORIDE [Suspect]
     Active Substance: DIPHENHYDRAMINE HYDROCHLORIDE
     Indication: Angioedema
     Dosage: TOTAL OF 11 DOSES OF DPH OVER 3 DAYS
     Route: 042
  2. LORATADINE [Concomitant]
     Active Substance: LORATADINE
  3. METFORMIN [Concomitant]
     Active Substance: METFORMIN HYDROCHLORIDE
  4. OMEPRAZOLE [Concomitant]
     Active Substance: OMEPRAZOLE
  5. OXYBUTYNIN [Concomitant]
     Active Substance: OXYBUTYNIN
  6. PRAVASTATIN [Concomitant]
     Active Substance: PRAVASTATIN
  7. ALBUTEROL [Concomitant]
     Active Substance: ALBUTEROL
     Indication: Angioedema

REACTIONS (2)
  - Defect conduction intraventricular [Recovered/Resolved]
  - Electrocardiogram abnormal [Recovered/Resolved]
